APPROVED DRUG PRODUCT: AMLODIPINE BESYLATE AND BENAZEPRIL HYDROCHLORIDE
Active Ingredient: AMLODIPINE BESYLATE; BENAZEPRIL HYDROCHLORIDE
Strength: EQ 10MG BASE;20MG
Dosage Form/Route: CAPSULE;ORAL
Application: A078381 | Product #004
Applicant: CHARTWELL RX SCIENCES LLC
Approved: Jul 29, 2010 | RLD: No | RS: No | Type: DISCN